FAERS Safety Report 14800629 (Version 1)
Quarter: 2018Q2

REPORT INFORMATION
  Report Type: Spontaneous
  Country: US (occurrence: US)
  Receive Date: 20180416
  Receipt Date: 20180416
  Transmission Date: 20180711
  Serious: Yes (Life-Threatening)
  Sender: FDA-Public Use
  Company Number: None

PATIENT
  Age: 57 Year
  Sex: Female
  Weight: 67.5 kg

DRUGS (4)
  1. VITAMIN B12 [Concomitant]
     Active Substance: CYANOCOBALAMIN
  2. CRESTOR [Concomitant]
     Active Substance: ROSUVASTATIN CALCIUM
  3. VITAMIN D [Concomitant]
     Active Substance: CHOLECALCIFEROL
  4. YUVAFEM [Suspect]
     Active Substance: ESTRADIOL HEMIHYDRATE
     Indication: POSTMENOPAUSE
     Route: 067
     Dates: start: 20170501, end: 20170721

REACTIONS (9)
  - Visual impairment [None]
  - Head discomfort [None]
  - Abdominal distension [None]
  - Dizziness [None]
  - Blood pressure increased [None]
  - Insurance issue [None]
  - Chest discomfort [None]
  - Product substitution issue [None]
  - Abdominal pain [None]
